FAERS Safety Report 13202480 (Version 2)
Quarter: 2017Q1

REPORT INFORMATION
  Report Type: Spontaneous
  Country: US (occurrence: US)
  Receive Date: 20170209
  Receipt Date: 20170224
  Transmission Date: 20170428
  Serious: No
  Sender: FDA-Public Use
  Company Number: US-PFIZER INC-2017058895

PATIENT
  Age: 64 Year
  Sex: Male
  Weight: 81.63 kg

DRUGS (2)
  1. EFFEXOR XR [Suspect]
     Active Substance: VENLAFAXINE HYDROCHLORIDE
     Dosage: 150 MG, UNK
     Dates: start: 20170114
  2. EFFEXOR XR [Suspect]
     Active Substance: VENLAFAXINE HYDROCHLORIDE
     Dosage: UNK
     Dates: start: 201612

REACTIONS (10)
  - Dysgeusia [Unknown]
  - Dizziness [Unknown]
  - Feeling cold [Unknown]
  - Hypoaesthesia [Unknown]
  - Hot flush [Recovered/Resolved]
  - Chest discomfort [Unknown]
  - Hyperhidrosis [Unknown]
  - Chest pain [Unknown]
  - Malaise [Unknown]
  - Product taste abnormal [Unknown]
